FAERS Safety Report 17822481 (Version 1)
Quarter: 2020Q2

REPORT INFORMATION
  Report Type: Spontaneous
  Country: CA (occurrence: CA)
  Receive Date: 20200526
  Receipt Date: 20200526
  Transmission Date: 20200714
  Serious: Yes (Hospitalization, Disabling, Other)
  Sender: FDA-Public Use
  Company Number: CA-AMGEN-CANSP2020082032

PATIENT
  Age: 64 Year
  Sex: Female

DRUGS (4)
  1. PROLIA [Suspect]
     Active Substance: DENOSUMAB
     Indication: PRODUCT USED FOR UNKNOWN INDICATION
     Dosage: UNK UNK, Q6MO
     Route: 058
  2. ATORVASTATIN [Concomitant]
     Active Substance: ATORVASTATIN
  3. CELECOXIB. [Concomitant]
     Active Substance: CELECOXIB
  4. RAMIPRIL. [Concomitant]
     Active Substance: RAMIPRIL

REACTIONS (6)
  - Hypercalcaemia [Unknown]
  - Blood parathyroid hormone abnormal [Unknown]
  - Pathological fracture [Unknown]
  - Thoracic vertebral fracture [Unknown]
  - C-telopeptide increased [Unknown]
  - Spinal compression fracture [Unknown]
